FAERS Safety Report 9837169 (Version 1)
Quarter: 2013Q4

REPORT INFORMATION
  Report Type: Spontaneous
  Country: US (occurrence: None)
  Receive Date: 20131205
  Receipt Date: 20131205
  Transmission Date: 20140711
  Serious: No
  Sender: FDA-Public Use
  Company Number: 163-POMAL-13083370

PATIENT
  Age: 70 Year
  Sex: Male

DRUGS (6)
  1. POMALYST (POMALIDOMIDE) (4 MILLIGRAM CAPSULES) [Suspect]
     Indication: PLASMA CELL MYELOMA
     Dosage: 4MG, 21 IN 28D, PO
     Route: 048
     Dates: start: 20130723
  2. LASIX (FUROSEMIDE) [Concomitant]
  3. COUMADIN (WARFARIN SODIUM) [Concomitant]
  4. DIGOXIN (DIGOXIN) [Concomitant]
  5. DILAUDID (HYDROMORPHONE HYDROCHLORIDE) (TABLETS) [Concomitant]
  6. LOPRESSOR (METOPROLOL TARTRATE) (TABLETS) [Concomitant]

REACTIONS (2)
  - Urosepsis [None]
  - Neutropenia [None]
